FAERS Safety Report 5098533-0 (Version None)
Quarter: 2006Q3

REPORT INFORMATION
  Report Type: 
  Country: None (occurrence: None)
  Receive Date: 20060906
  Receipt Date: 20060220
  Transmission Date: 20061208
  Serious: No
  Sender: FDA-Public Use
  Company Number: US-GLAXOSMITHKLINE-A0594412A

PATIENT
  Age: 81 Year
  Sex: Female

DRUGS (10)
  1. REQUIP [Suspect]
     Indication: RESTLESS LEGS SYNDROME
     Dosage: .25MG PER DAY
     Route: 048
  2. PLAVIX [Concomitant]
  3. PREMARIN [Concomitant]
  4. PROTONIX [Concomitant]
  5. PREDNISONE TAB [Concomitant]
  6. ZOLOFT [Concomitant]
  7. MIRAPEX [Concomitant]
  8. PROVIGIL [Concomitant]
  9. DILTIAZEM HCL [Concomitant]
  10. CILOSTAZOL [Concomitant]

REACTIONS (1)
  - DRUG INEFFECTIVE [None]
